FAERS Safety Report 17055916 (Version 1)
Quarter: 2019Q4

REPORT INFORMATION
  Report Type: Other
  Country: DE (occurrence: DE)
  Receive Date: 20191120
  Receipt Date: 20191120
  Transmission Date: 20200122
  Serious: Yes (Life-Threatening, Hospitalization, Other)
  Sender: FDA-Public Use
  Company Number: DE-CELLTRION INC.-2019DE026632

PATIENT

DRUGS (53)
  1. RANITIDIN [Concomitant]
     Active Substance: RANITIDINE HYDROCHLORIDE
     Indication: PROPHYLAXIS
     Dosage: UNK
     Route: 042
     Dates: start: 20171106, end: 20171106
  2. RANITIDIN [Concomitant]
     Active Substance: RANITIDINE HYDROCHLORIDE
     Dosage: UNK
     Route: 042
     Dates: start: 20171128, end: 20171128
  3. RAMICLAIR [Concomitant]
     Indication: HYPERTENSION
     Dosage: 10 MG, UNK
     Route: 048
     Dates: start: 20170915
  4. KEVATRIL [Concomitant]
     Active Substance: GRANISETRON HYDROCHLORIDE
     Dosage: 1 MG UNK
     Route: 042
     Dates: start: 20180112, end: 20180112
  5. PREDNISOLUT [PREDNISOLONE SODIUM SUCCINATE] [Concomitant]
     Indication: PROPHYLAXIS
     Dosage: 100 MG, UNK
     Route: 042
     Dates: start: 20171106, end: 20171106
  6. TAVEGIL [CLEMASTINE] [Concomitant]
     Active Substance: CLEMASTINE
     Indication: PROPHYLAXIS
     Dosage: UNK
     Route: 042
     Dates: start: 20171106, end: 20171106
  7. AMPHO MORONAL [Concomitant]
     Active Substance: AMPHOTERICIN B
     Indication: PROPHYLAXIS
     Dosage: UNK
     Route: 048
     Dates: start: 20171106, end: 20171112
  8. AMPHO MORONAL [Concomitant]
     Active Substance: AMPHOTERICIN B
     Dosage: UNK UNK, QID
     Route: 048
     Dates: start: 20180110
  9. BEPANTHEN [DEXPANTHENOL] [Concomitant]
     Active Substance: DEXPANTHENOL
     Indication: PROPHYLAXIS
     Dosage: UNK UNK, BID
     Route: 065
     Dates: start: 20171221, end: 20171227
  10. PANTOZOL [Concomitant]
     Active Substance: PANTOPRAZOLE SODIUM
     Dosage: 40 MG, UNK
     Route: 048
     Dates: start: 20171106
  11. AMLODIPINE [Concomitant]
     Active Substance: AMLODIPINE BESYLATE
     Indication: HYPERTENSION
     Dosage: 10 MG, UNK
     Route: 048
     Dates: start: 20170915
  12. RITUXIMAB (UNKNOWN) [Suspect]
     Active Substance: RITUXIMAB
     Dosage: 710 MG, UNK (INFUSION RATE: 1.67 (ML/MIN))
     Route: 042
     Dates: start: 20171128, end: 20171128
  13. CYCLOPHOSPHAMIDE. [Suspect]
     Active Substance: CYCLOPHOSPHAMIDE
     Indication: DIFFUSE LARGE B-CELL LYMPHOMA
     Dosage: 1418 MG, UNK (INFUSION RATE: 416 (ML/MIN))
     Route: 041
     Dates: start: 20171107, end: 20171107
  14. OPIPRAMOL [Concomitant]
     Active Substance: OPIPRAMOL
     Indication: PARKINSON^S DISEASE
     Dosage: 100 MG, UNK
     Route: 048
     Dates: start: 20170915
  15. BISOPROLOL [Concomitant]
     Active Substance: BISOPROLOL
     Indication: HYPERTENSION
     Dosage: 5 MG, UNK
     Route: 048
     Dates: start: 20170915
  16. KEVATRIL [Concomitant]
     Active Substance: GRANISETRON HYDROCHLORIDE
     Indication: PROPHYLAXIS
     Dosage: 3 MG UNK
     Route: 042
     Dates: start: 20171107, end: 20171107
  17. PARACETAMOL [Concomitant]
     Active Substance: ACETAMINOPHEN
     Dosage: 1 G, UNK
     Route: 048
     Dates: start: 20180110, end: 20180110
  18. RANITIDIN [Concomitant]
     Active Substance: RANITIDINE HYDROCHLORIDE
     Dosage: UNK
     Route: 042
     Dates: start: 20180110, end: 20180110
  19. PREDNISOLUT [PREDNISOLONE SODIUM SUCCINATE] [Concomitant]
     Dosage: 100 MG, UNK
     Route: 042
     Dates: start: 20180110, end: 20180110
  20. MESNA. [Concomitant]
     Active Substance: MESNA
     Indication: PROPHYLAXIS
     Dosage: 1200 MG, UNK
     Route: 042
     Dates: start: 20171107, end: 20171107
  21. MESNA. [Concomitant]
     Active Substance: MESNA
     Dosage: 1200 MG, UNK
     Route: 042
     Dates: start: 20180111, end: 20180111
  22. NEUPRO [Concomitant]
     Active Substance: ROTIGOTINE
     Indication: PARKINSON^S DISEASE
     Dosage: 4 MG, UNK
     Route: 062
     Dates: start: 20170915
  23. ACICLOVIR [Concomitant]
     Active Substance: ACYCLOVIR
     Indication: PROPHYLAXIS
     Dosage: 800 MG, UNK
     Route: 048
     Dates: start: 20171106
  24. COTRIM FORTE [Concomitant]
     Active Substance: SULFAMETHOXAZOLE\TRIMETHOPRIM
     Indication: PROPHYLAXIS
     Dosage: UNK UNK, QW3 (3 DAYS A WEEK)
     Route: 048
     Dates: start: 20171106
  25. VINCRISTINE [Suspect]
     Active Substance: VINCRISTINE
     Dosage: 1 MG, UNK (INFUSION RATE: 1 (ML/MIN))
     Route: 041
     Dates: start: 20180111, end: 20180111
  26. MESNA. [Concomitant]
     Active Substance: MESNA
     Dosage: 1200 MG, UNK
     Route: 042
     Dates: start: 20171129, end: 20171129
  27. PREDNISONE. [Suspect]
     Active Substance: PREDNISONE
     Indication: DIFFUSE LARGE B-CELL LYMPHOMA
     Dosage: 500 MG, UNK
     Route: 048
     Dates: start: 20171106, end: 20171110
  28. DOXORUBICIN [Suspect]
     Active Substance: DOXORUBICIN
     Dosage: 95 MG, UNK (INFUSION RATE: 8.3 (ML/MIN))
     Route: 041
     Dates: start: 20171129, end: 20171129
  29. CYCLOPHOSPHAMIDE. [Suspect]
     Active Substance: CYCLOPHOSPHAMIDE
     Dosage: 1418 MG, UNK (INFUSION RATE: 4.17 (ML/MIN))
     Route: 041
     Dates: start: 20171129, end: 20171129
  30. PREDNISOLUT [PREDNISOLONE SODIUM SUCCINATE] [Concomitant]
     Dosage: 100 MG, UNK
     Route: 042
     Dates: start: 20171128, end: 20171128
  31. TAVEGIL [CLEMASTINE] [Concomitant]
     Active Substance: CLEMASTINE
     Dosage: UNK
     Route: 042
     Dates: start: 20180110, end: 20180110
  32. RITUXIMAB (UNKNOWN) [Suspect]
     Active Substance: RITUXIMAB
     Indication: DIFFUSE LARGE B-CELL LYMPHOMA
     Dosage: 710 MG, UNK (INFUSION RATE: 1.66 (ML/MIN))
     Route: 042
     Dates: start: 20171106, end: 20171106
  33. PREDNISONE. [Suspect]
     Active Substance: PREDNISONE
     Dosage: 500 MG, UNK
     Route: 048
     Dates: start: 20180111, end: 20180115
  34. VINCRISTINE [Suspect]
     Active Substance: VINCRISTINE
     Dosage: 1 MG, UNK (INFUSION RATE: 1 (ML/MIN))
     Route: 041
     Dates: start: 20171129, end: 20171129
  35. CYCLOPHOSPHAMIDE. [Suspect]
     Active Substance: CYCLOPHOSPHAMIDE
     Dosage: 1343 MG, UNK (INFUSION RATE: 4.17 (ML/MIN))
     Route: 041
     Dates: start: 20180111, end: 20180111
  36. KEVATRIL [Concomitant]
     Active Substance: GRANISETRON HYDROCHLORIDE
     Dosage: 1 MG UNK
     Route: 042
     Dates: start: 20171108, end: 20171108
  37. PARACETAMOL [Concomitant]
     Active Substance: ACETAMINOPHEN
     Dosage: 1 G, UNK
     Route: 047
     Dates: start: 20171128, end: 20171128
  38. LEVOBEN [Concomitant]
     Indication: PARKINSON^S DISEASE
     Dosage: UNK
     Route: 048
     Dates: start: 20170915
  39. RITUXIMAB (UNKNOWN) [Suspect]
     Active Substance: RITUXIMAB
     Dosage: 672 MG, UNK (INFUSION RATE: 4.17 (ML/MIN))
     Route: 042
     Dates: start: 20180110, end: 20180110
  40. DOXORUBICIN [Suspect]
     Active Substance: DOXORUBICIN
     Indication: DIFFUSE LARGE B-CELL LYMPHOMA
     Dosage: 95 MG, UNK (INFUSION RATE: 8.3 (ML/MIN))
     Route: 041
     Dates: start: 20171107, end: 20171107
  41. SMOFKABIVEN [Concomitant]
     Active Substance: AMINO ACIDS\DEXTROSE\ELECTROLYTES NOS\SOYBEAN OIL
     Indication: PRODUCT USED FOR UNKNOWN INDICATION
     Dosage: PERI 800KCAL
     Route: 042
     Dates: start: 20180112
  42. PARACETAMOL [Concomitant]
     Active Substance: ACETAMINOPHEN
     Indication: PROPHYLAXIS
     Dosage: 1 G, UNK
     Route: 048
     Dates: start: 20171106, end: 20171106
  43. TAVEGIL [CLEMASTINE] [Concomitant]
     Active Substance: CLEMASTINE
     Dosage: UNK
     Route: 042
     Dates: start: 20171128, end: 20171128
  44. PANTOZOL [Concomitant]
     Active Substance: PANTOPRAZOLE SODIUM
     Indication: PROPHYLAXIS
     Dosage: 20 MG, UNK
     Route: 048
     Dates: start: 20170915, end: 20171105
  45. VINCRISTINE [Suspect]
     Active Substance: VINCRISTINE
     Indication: DIFFUSE LARGE B-CELL LYMPHOMA
     Dosage: 1 MG, UNK (INFUSION RATE: 1 (ML/MIN))
     Route: 041
     Dates: start: 20171107, end: 20171107
  46. NOVALGIN (METAMIZOLE SODIUM) [Concomitant]
     Active Substance: METAMIZOLE SODIUM
     Indication: PRODUCT USED FOR UNKNOWN INDICATION
     Dosage: 90 GGT, UNK
     Route: 048
     Dates: start: 20170915
  47. KEVATRIL [Concomitant]
     Active Substance: GRANISETRON HYDROCHLORIDE
     Dosage: 1 MG UNK
     Route: 042
     Dates: start: 20171130, end: 20171130
  48. CANESTEN [Concomitant]
     Active Substance: CLOTRIMAZOLE
     Indication: PROPHYLAXIS
     Dosage: UNK
     Route: 065
     Dates: start: 20171206
  49. VITAMIN B12 [Concomitant]
     Active Substance: CYANOCOBALAMIN
     Indication: PRODUCT USED FOR UNKNOWN INDICATION
     Dosage: UNK
     Route: 048
     Dates: start: 20170915
  50. PREDNISONE. [Suspect]
     Active Substance: PREDNISONE
     Dosage: 500 MG, UNK
     Route: 048
     Dates: start: 20171129, end: 20171203
  51. DOXORUBICIN [Suspect]
     Active Substance: DOXORUBICIN
     Dosage: 90 MG, UNK (INFUSION RATE: 8.3 (ML/MIN))
     Route: 041
     Dates: start: 20180111, end: 20180111
  52. KEVATRIL [Concomitant]
     Active Substance: GRANISETRON HYDROCHLORIDE
     Dosage: 3 MG UNK
     Route: 042
     Dates: start: 20171129, end: 20171129
  53. KEVATRIL [Concomitant]
     Active Substance: GRANISETRON HYDROCHLORIDE
     Dosage: 3 MG UNK
     Route: 042
     Dates: start: 20180111, end: 20180111

REACTIONS (7)
  - Haemoglobin decreased [Recovered/Resolved]
  - Gastroenteritis norovirus [Recovered/Resolved]
  - Oral candidiasis [Recovered/Resolved]
  - Underdose [Unknown]
  - C-reactive protein increased [Not Recovered/Not Resolved]
  - Product use issue [Unknown]
  - Febrile neutropenia [Recovered/Resolved]

NARRATIVE: CASE EVENT DATE: 20171122
